FAERS Safety Report 9559915 (Version 2)
Quarter: 2013Q4

REPORT INFORMATION
  Report Type: Spontaneous
  Country: US (occurrence: US)
  Receive Date: 20130927
  Receipt Date: 20131105
  Transmission Date: 20140711
  Serious: No
  Sender: FDA-Public Use
  Company Number: US-PFIZER INC-2013274174

PATIENT
  Age: 48 Year
  Sex: Male
  Weight: 108.84 kg

DRUGS (11)
  1. XELJANZ [Suspect]
     Dosage: 5 MG (1 TABLET) TWICE DAILY
     Route: 048
  2. OMEPRAZOLE [Concomitant]
     Dosage: 10 MG
  3. OXYCODONE [Concomitant]
     Dosage: 10 MG
  4. PREDNISONE [Concomitant]
     Dosage: 5 MG
  5. OXYCONTIN [Concomitant]
     Dosage: 10 MG
  6. METHOTREXATE [Concomitant]
     Dosage: 2.5 MG
  7. FOLIC ACID [Concomitant]
     Dosage: UNK
  8. CELEBREX [Concomitant]
     Dosage: 50 MG
  9. GLIPIZIDE [Concomitant]
     Dosage: 5 MG
  10. VITAMIN D [Concomitant]
     Dosage: 400 IU
  11. VITAMIN C [Concomitant]
     Dosage: 500 MG

REACTIONS (2)
  - Abdominal pain upper [Unknown]
  - Hot flush [Unknown]
